FAERS Safety Report 17356523 (Version 1)
Quarter: 2020Q1

REPORT INFORMATION
  Report Type: Spontaneous
  Country: SE (occurrence: SE)
  Receive Date: 20200131
  Receipt Date: 20200131
  Transmission Date: 20200409
  Serious: Yes (Hospitalization)
  Sender: FDA-Public Use
  Company Number: SE-MYLANLABS-2020M1011035

PATIENT
  Age: 17 Year

DRUGS (2)
  1. ESCITALOPRAM [Suspect]
     Active Substance: ESCITALOPRAM OXALATE
     Indication: PRODUCT USED FOR UNKNOWN INDICATION
     Dosage: ^OKLARA M?NGDER  DOSETTEN ?R TOM^
     Route: 048
     Dates: start: 20181217, end: 20181217
  2. ALIMEMAZINE [Suspect]
     Active Substance: TRIMEPRAZINE
     Indication: PRODUCT USED FOR UNKNOWN INDICATION
     Dosage: ^OKLARA M?NGDER  DOSETTEN ?R TOM^
     Route: 048
     Dates: start: 20181217, end: 20181217

REACTIONS (4)
  - Somnolence [Unknown]
  - Intentional overdose [Unknown]
  - Unresponsive to stimuli [Unknown]
  - Intentional self-injury [Unknown]

NARRATIVE: CASE EVENT DATE: 20181217
